FAERS Safety Report 7397161-1 (Version None)
Quarter: 2011Q2

REPORT INFORMATION
  Report Type: 
  Country: None (occurrence: None)
  Receive Date: 20110406
  Receipt Date: 20110329
  Transmission Date: 20111010
  Serious: Yes (Other)
  Sender: FDA-Public Use
  Company Number: B0710469A

PATIENT
  Age: 59 Year
  Sex: Male

DRUGS (1)
  1. FLIXONASE [Suspect]
     Dosage: 4SPR TWICE PER DAY
     Route: 045
     Dates: start: 20080101, end: 20090101

REACTIONS (1)
  - GLAUCOMA [None]
